FAERS Safety Report 17825905 (Version 1)
Quarter: 2020Q2

REPORT INFORMATION
  Report Type: Spontaneous
  Country: SI (occurrence: SI)
  Receive Date: 20200526
  Receipt Date: 20200526
  Transmission Date: 20200714
  Serious: Yes (Other)
  Sender: FDA-Public Use
  Company Number: SI-BAYER-2020-085094

PATIENT
  Age: 65 Year
  Sex: Female

DRUGS (3)
  1. STIVARGA [Suspect]
     Active Substance: REGORAFENIB
     Indication: METASTASES TO LIVER
     Dosage: 80 MG DAILY
     Dates: end: 201912
  2. STIVARGA [Suspect]
     Active Substance: REGORAFENIB
     Indication: METASTASES TO LUNG
  3. STIVARGA [Suspect]
     Active Substance: REGORAFENIB
     Indication: RECTAL CANCER
     Dosage: 120 MG DAILY
     Dates: start: 201909

REACTIONS (6)
  - Blood pressure increased [Recovering/Resolving]
  - Fatigue [None]
  - Metastases to liver [None]
  - Constipation [Not Recovered/Not Resolved]
  - Metastases to lung [None]
  - Oral pain [None]
